FAERS Safety Report 7727800-4 (Version None)
Quarter: 2011Q3

REPORT INFORMATION
  Report Type: 
  Country: None (occurrence: None)
  Receive Date: 20110905
  Receipt Date: 20110825
  Transmission Date: 20111222
  Serious: Yes (Hospitalization)
  Sender: FDA-Public Use
  Company Number: TR-AMGEN-TURSP2011043922

PATIENT
  Age: 28 Year
  Sex: Male

DRUGS (1)
  1. ENBREL [Suspect]
     Indication: PSORIASIS
     Dosage: 50 MG, 2X/WEEK
     Route: 058
     Dates: start: 20110103, end: 20110106

REACTIONS (5)
  - URTICARIA PAPULAR [None]
  - RASH PUSTULAR [None]
  - PRURITUS [None]
  - ERYTHEMA [None]
  - PAIN [None]
